FAERS Safety Report 9491994 (Version 3)
Quarter: 2014Q1

REPORT INFORMATION
  Report Type: Report from Study
  Country: GB (occurrence: GB)
  Receive Date: 20130830
  Receipt Date: 20140220
  Transmission Date: 20141002
  Serious: Yes (Other)
  Sender: FDA-Public Use
  Company Number: GB-CELGENEUS-167-C5013-13082778

PATIENT
  Age: 77 Year
  Sex: Male
  Weight: 120 kg

DRUGS (6)
  1. THALIDOMIDE [Suspect]
     Indication: PLASMA CELL MYELOMA
     Dosage: 200 MILLIGRAM
     Route: 048
     Dates: start: 20100414
  2. THALIDOMIDE [Suspect]
     Dosage: 100 MILLIGRAM
     Route: 048
     Dates: start: 20110727, end: 20110906
  3. MELPHALAN [Suspect]
     Indication: PLASMA CELL MYELOMA
     Dosage: 24 MILLIGRAM
     Route: 065
     Dates: start: 20100414
  4. MELPHALAN [Suspect]
     Dosage: 16 MILLIGRAM
     Route: 065
     Dates: start: 20110727, end: 20110906
  5. PREDNISONE [Suspect]
     Indication: PLASMA CELL MYELOMA
     Dosage: 245 MILLIGRAM
     Route: 065
     Dates: start: 20100414
  6. PREDNISONE [Suspect]
     Dosage: 245 MILLIGRAM
     Route: 065
     Dates: start: 20110727, end: 20110906

REACTIONS (1)
  - Prostate cancer [Not Recovered/Not Resolved]
